FAERS Safety Report 23641120 (Version 1)
Quarter: 2024Q1

REPORT INFORMATION
  Report Type: Report from Study
  Country: NL (occurrence: NL)
  Receive Date: 20240318
  Receipt Date: 20240318
  Transmission Date: 20240410
  Serious: Yes (Death)
  Sender: FDA-Public Use
  Company Number: NL-IPSEN Group, Research and Development-2024-04355

PATIENT
  Age: 78 Year
  Sex: Female

DRUGS (1)
  1. LANREOTIDE ACETATE [Suspect]
     Active Substance: LANREOTIDE ACETATE
     Indication: Neuroendocrine tumour
     Route: 058
     Dates: start: 20240222

REACTIONS (2)
  - Palliative care [Fatal]
  - Off label use [Unknown]

NARRATIVE: CASE EVENT DATE: 20240314
